FAERS Safety Report 15182648 (Version 4)
Quarter: 2018Q3

REPORT INFORMATION
  Report Type: Spontaneous
  Country: US (occurrence: US)
  Receive Date: 20180723
  Receipt Date: 20180919
  Transmission Date: 20181010
  Serious: Yes (Death, Life-Threatening, Hospitalization, Other)
  Sender: FDA-Public Use
  Company Number: US-SAREPTA THERAPEUTICS, INC-SRP-000125-2018

PATIENT
  Age: 21 Year
  Sex: Male
  Weight: 54.5 kg

DRUGS (19)
  1. DEFLAZACORT [Concomitant]
     Active Substance: DEFLAZACORT
     Indication: PRODUCT USED FOR UNKNOWN INDICATION
     Dosage: 1 ML, PO/PEG DAILY
     Route: 048
  2. NEXIUM [Concomitant]
     Active Substance: ESOMEPRAZOLE MAGNESIUM
     Indication: PRODUCT USED FOR UNKNOWN INDICATION
     Dosage: 1 PACKET (40 MG) BY MOUTH PER DAY MIXED WITH 15 ML OF WATER
     Route: 048
  3. LEVALBUTEROL. [Concomitant]
     Active Substance: LEVALBUTEROL
     Indication: PRODUCT USED FOR UNKNOWN INDICATION
     Dosage: 1 VIAL VIA NEB EVERY 4?6 HOURS
     Route: 055
  4. DYMISTA [Concomitant]
     Active Substance: AZELASTINE HYDROCHLORIDE\FLUTICASONE PROPIONATE
     Indication: PRODUCT USED FOR UNKNOWN INDICATION
     Dosage: 1?2 SPRAYS PER DAY
     Route: 065
  5. CARVEDILOL. [Concomitant]
     Active Substance: CARVEDILOL
     Indication: PRODUCT USED FOR UNKNOWN INDICATION
     Dosage: 1.88 ML, BID
     Route: 065
  6. AZATHIOPRINE. [Concomitant]
     Active Substance: AZATHIOPRINE
     Indication: PRODUCT USED FOR UNKNOWN INDICATION
     Dosage: 2.5 ML, DAILY
     Route: 065
  7. ERGOCALCIFEROL. [Concomitant]
     Active Substance: ERGOCALCIFEROL
     Indication: PRODUCT USED FOR UNKNOWN INDICATION
     Dosage: 1 DF, TWICE A MONTH
     Route: 048
  8. LEVOCETIRIZINE DIHYDROCHLORIDE. [Concomitant]
     Active Substance: LEVOCETIRIZINE DIHYDROCHLORIDE
     Indication: PRODUCT USED FOR UNKNOWN INDICATION
     Dosage: 1 TSP BID, AS NEEDED
     Route: 048
  9. PLEXUS PROBIO 5 [Concomitant]
     Indication: PRODUCT USED FOR UNKNOWN INDICATION
     Dosage: 1 DF, DAILY
     Route: 065
  10. ZINC. [Concomitant]
     Active Substance: ZINC
     Indication: PRODUCT USED FOR UNKNOWN INDICATION
     Dosage: UNK, QD
     Route: 048
  11. ALLERTEC [Concomitant]
     Active Substance: CETIRIZINE HYDROCHLORIDE
     Indication: PRODUCT USED FOR UNKNOWN INDICATION
     Dosage: 2 TABLESPOON, QD
     Route: 065
  12. SODIUM CHLORIDE. [Concomitant]
     Active Substance: SODIUM CHLORIDE
     Indication: PRODUCT USED FOR UNKNOWN INDICATION
     Dosage: UNK, PRN
     Route: 055
  13. DIGOXIN. [Concomitant]
     Active Substance: DIGOXIN
     Indication: PRODUCT USED FOR UNKNOWN INDICATION
     Dosage: UNK, BID
     Route: 065
  14. EXONDYS 51 [Suspect]
     Active Substance: ETEPLIRSEN
     Indication: DUCHENNE MUSCULAR DYSTROPHY
     Dosage: 1650 MG, WEEKLY
     Route: 042
     Dates: start: 20170213, end: 20180620
  15. FAMOTIDINE. [Concomitant]
     Active Substance: FAMOTIDINE
     Indication: PRODUCT USED FOR UNKNOWN INDICATION
     Dosage: 1 TABLET (40 MG) BY MOUTH DAILY
     Route: 048
  16. POTASSIUM CHLORIDE. [Concomitant]
     Active Substance: POTASSIUM CHLORIDE
     Indication: PRODUCT USED FOR UNKNOWN INDICATION
     Dosage: 7.5 ML, DAILY
     Route: 065
  17. VITAMIN B12 [Concomitant]
     Active Substance: CYANOCOBALAMIN
     Indication: PRODUCT USED FOR UNKNOWN INDICATION
     Dosage: 2 GTT, 3 TIMES A WEEK
     Route: 060
  18. LASIX [Concomitant]
     Active Substance: FUROSEMIDE
     Indication: PRODUCT USED FOR UNKNOWN INDICATION
     Dosage: 2 ML, PER DAY
     Route: 065
  19. ONDANSETRON [Concomitant]
     Active Substance: ONDANSETRON
     Indication: PRODUCT USED FOR UNKNOWN INDICATION
     Dosage: 1 TAB, EVERY 8 HRS
     Route: 065

REACTIONS (3)
  - Cardiac failure congestive [Fatal]
  - Sepsis [Recovered/Resolved]
  - Oedema peripheral [Unknown]

NARRATIVE: CASE EVENT DATE: 20180703
